APPROVED DRUG PRODUCT: ISOFLURANE
Active Ingredient: ISOFLURANE
Strength: 99.9%
Dosage Form/Route: LIQUID;INHALATION
Application: A074097 | Product #001
Applicant: HOSPIRA INC
Approved: Jan 25, 1993 | RLD: No | RS: No | Type: DISCN